FAERS Safety Report 6984577 (Version 3)
Quarter: 2014Q2

REPORT INFORMATION
  Report Type: Spontaneous
  Country: US (occurrence: US)
  Receive Date: 20090501
  Receipt Date: 20140415
  Transmission Date: 20141212
  Serious: Yes (Hospitalization)
  Sender: FDA-Public Use
  Company Number: US-ALEXION-A200800240

PATIENT
  Age: 49 Year
  Sex: Male
  Weight: 99 kg

DRUGS (8)
  1. SOLIRIS [Suspect]
     Indication: PAROXYSMAL NOCTURNAL HAEMOGLOBINURIA
     Dosage: 600 MG, UNK
     Route: 042
     Dates: start: 20070521, end: 2007
  2. SOLIRIS [Suspect]
     Dosage: 900 MG, UNK
     Route: 042
     Dates: start: 20070618
  3. SOLIRIS [Suspect]
     Dosage: 900 MG, Q2W
     Route: 042
     Dates: start: 20080908
  4. PRILOSEC                           /00661201/ [Concomitant]
     Indication: GASTROOESOPHAGEAL REFLUX DISEASE
     Dosage: 20 MG, QD
     Route: 048
  5. VITAMIN B12                        /00056201/ [Concomitant]
     Indication: VITAMIN B12 DEFICIENCY
     Dosage: 2 MG, BID
     Route: 048
  6. FOLIC ACID [Concomitant]
     Indication: PAROXYSMAL NOCTURNAL HAEMOGLOBINURIA
     Dosage: 1 G, BID
     Route: 048
  7. K-DUR [Concomitant]
     Dosage: UNK, PRN
     Route: 048
  8. TYLENOL                            /00020001/ [Concomitant]
     Dosage: UNK, PRN
     Route: 048

REACTIONS (5)
  - Dizziness [Recovered/Resolved]
  - Asthenia [Unknown]
  - Syncope [Recovered/Resolved]
  - Fall [Recovered/Resolved]
  - Somnolence [Unknown]
